FAERS Safety Report 16214914 (Version 1)
Quarter: 2019Q2

REPORT INFORMATION
  Report Type: Spontaneous
  Country: US (occurrence: US)
  Receive Date: 20190418
  Receipt Date: 20190418
  Transmission Date: 20190711
  Serious: Yes (Hospitalization)
  Sender: FDA-Public Use
  Company Number: US-JNJFOC-20190408504

PATIENT

DRUGS (4)
  1. XARELTO [Suspect]
     Active Substance: RIVAROXABAN
     Indication: HIGH FREQUENCY ABLATION
     Route: 048
     Dates: start: 20150515, end: 20180307
  2. XARELTO [Suspect]
     Active Substance: RIVAROXABAN
     Indication: DEEP VEIN THROMBOSIS
     Route: 048
     Dates: start: 20150515, end: 20180307
  3. XARELTO [Suspect]
     Active Substance: RIVAROXABAN
     Indication: DEEP VEIN THROMBOSIS
     Route: 048
     Dates: start: 20180702, end: 20180919
  4. XARELTO [Suspect]
     Active Substance: RIVAROXABAN
     Indication: HIGH FREQUENCY ABLATION
     Route: 048
     Dates: start: 20180702, end: 20180919

REACTIONS (2)
  - Subdural haematoma [Unknown]
  - Upper gastrointestinal haemorrhage [Unknown]

NARRATIVE: CASE EVENT DATE: 20180307
